FAERS Safety Report 12761485 (Version 1)
Quarter: 2016Q3

REPORT INFORMATION
  Report Type: Spontaneous
  Country: US (occurrence: US)
  Receive Date: 20160920
  Receipt Date: 20160920
  Transmission Date: 20161109
  Serious: No
  Sender: FDA-Public Use
  Company Number: US-AUROBINDO-AUR-APU-2016-06178

PATIENT
  Sex: Female
  Weight: 79.37 kg

DRUGS (1)
  1. PAROXETINE TABLETS USP 30MG [Suspect]
     Active Substance: PAROXETINE
     Indication: DEPRESSION
     Dosage: ONE TABLET DAILY
     Route: 065
     Dates: start: 20160503, end: 20160508

REACTIONS (6)
  - Fatigue [Recovered/Resolved]
  - Pruritus [Recovered/Resolved]
  - Product substitution issue [None]
  - Impaired work ability [None]
  - Nausea [Recovered/Resolved]
  - Product substitution issue [Recovered/Resolved]
